FAERS Safety Report 7758259-9 (Version None)
Quarter: 2011Q3

REPORT INFORMATION
  Report Type: 
  Country: None (occurrence: None)
  Receive Date: 20110825
  Receipt Date: 20110616
  Transmission Date: 20111222
  Serious: No
  Sender: FDA-Public Use
  Company Number: 330039

PATIENT
  Age: 49 Year
  Sex: Male

DRUGS (3)
  1. METFORMIN HCL [Concomitant]
  2. VICTOZA [Suspect]
     Indication: TYPE 2 DIABETES MELLITUS
     Dosage: 0.6 MG, QD, SUBCUTANEOUS
     Route: 058
     Dates: start: 20110614
  3. ACTOSE (PIOGLITAZONE HYDROCHLORIDE) [Concomitant]

REACTIONS (2)
  - HEADACHE [None]
  - NAUSEA [None]
